FAERS Safety Report 9727586 (Version 2)
Quarter: 2013Q4

REPORT INFORMATION
  Report Type: Spontaneous
  Country: US (occurrence: US)
  Receive Date: 20131203
  Receipt Date: 20131217
  Transmission Date: 20140711
  Serious: Yes (Hospitalization)
  Sender: FDA-Public Use
  Company Number: US-MPIJNJ-2013MPI001107

PATIENT
  Age: 67 Year
  Sex: Female
  Weight: 63.39 kg

DRUGS (19)
  1. VELCADE [Suspect]
     Indication: PLASMA CELL MYELOMA
     Dosage: 1.3 MG/M2, ON DAYS 1, 4, 8 AND 11 EACH 21 DAYS
     Route: 058
     Dates: start: 20130602, end: 20131101
  2. ACETAMINOPHEN [Concomitant]
     Dosage: 650 MG, QD
     Route: 048
  3. ACYCLOVIR                          /00587301/ [Concomitant]
     Dosage: 200 MG, 5 TIMES DAILY
     Route: 048
  4. ALPRAZOLAM [Concomitant]
     Indication: ANXIETY
     Dosage: 2 MG, UNK
     Route: 048
  5. BUDEPRION [Concomitant]
     Dosage: 150 MG, QD
     Route: 048
  6. VITAMIN B-12 [Concomitant]
     Dosage: 100 ?G, QONCE DAILY FOR 7 DAYS
     Route: 050
  7. VITAMIN B-12 [Concomitant]
     Dosage: 100 ?G, 1/WEEK FOR 7 WEEKS
     Route: 050
  8. CYCLOPHOSPHAMIDE [Concomitant]
     Dosage: 250 MG, UNK
     Route: 048
  9. DEXAMETHASONE [Concomitant]
     Dosage: 40 MG, 1/WEEK
     Route: 048
  10. DICYCLOMINE HCL [Concomitant]
     Dosage: 10 MG, UNK
     Route: 048
  11. DILAUDID [Concomitant]
     Indication: PAIN
     Dosage: 4 MG, UNK
     Route: 048
  12. ENTOCORT EC [Concomitant]
     Dosage: 3 MG, QD
     Route: 048
  13. GUAIFENESIN [Concomitant]
     Indication: COUGH
     Route: 048
  14. LEVAQUIN [Concomitant]
     Dosage: 500 MG, QD
     Route: 048
  15. LEVOTHYROXINE SODIUM [Concomitant]
     Dosage: 150 ?G, QD
     Route: 048
  16. OMEPRAZOLE [Concomitant]
     Dosage: 20 MG, QD
     Route: 048
  17. OXYCONTIN [Concomitant]
     Dosage: 30 MG, BID
     Route: 048
  18. TOPIRAMATE [Concomitant]
     Dosage: 100 MG, QD
     Route: 048
  19. TRAZODONE HCL [Concomitant]
     Dosage: 150 MG, QD
     Route: 048

REACTIONS (1)
  - Chest pain [Not Recovered/Not Resolved]
